FAERS Safety Report 7053635-4 (Version None)
Quarter: 2010Q4

REPORT INFORMATION
  Report Type: 
  Country: None (occurrence: None)
  Receive Date: 20101020
  Receipt Date: 20101011
  Transmission Date: 20110411
  Serious: Yes (Other)
  Sender: FDA-Public Use
  Company Number: DE-ROCHE-734206

PATIENT
  Sex: Male

DRUGS (2)
  1. AVASTIN [Suspect]
     Dosage: 3 ADMINISTRATIONS IN TOTAL
     Route: 065
  2. FOLFOX REGIMEN [Concomitant]
     Dosage: 1 CYCLE GIVEN PRIOR TO EVENTS

REACTIONS (3)
  - DIARRHOEA [None]
  - GASTROINTESTINAL MUCOSAL DISORDER [None]
  - LABORATORY TEST ABNORMAL [None]
